FAERS Safety Report 9999604 (Version 4)
Quarter: 2014Q2

REPORT INFORMATION
  Report Type: Spontaneous
  Country: US (occurrence: None)
  Receive Date: 20140310
  Receipt Date: 20140421
  Transmission Date: 20141212
  Serious: Yes (Disabling, Other)
  Sender: FDA-Public Use
  Company Number: 1403-0445

PATIENT
  Age: 82 Year
  Sex: 0

DRUGS (1)
  1. EYLEA [Suspect]
     Indication: AGE-RELATED MACULAR DEGENERATION
     Route: 031

REACTIONS (6)
  - Eye pain [None]
  - Culture positive [None]
  - Vitrectomy [None]
  - Visual acuity reduced [None]
  - Endophthalmitis [None]
  - Blindness [None]
